FAERS Safety Report 6596115-2 (Version None)
Quarter: 2010Q1

REPORT INFORMATION
  Report Type: 
  Country: None (occurrence: None)
  Receive Date: 20100223
  Receipt Date: 20100211
  Transmission Date: 20100710
  Serious: Yes (Death)
  Sender: FDA-Public Use
  Company Number: MY-PFIZER INC-2010017942

PATIENT
  Sex: Male

DRUGS (1)
  1. ERAXIS [Suspect]
     Indication: SYSTEMIC CANDIDA
     Dosage: 200 MG, SINGLE
     Route: 042

REACTIONS (1)
  - PNEUMONITIS [None]
